FAERS Safety Report 11446606 (Version 1)
Quarter: 2015Q3

REPORT INFORMATION
  Report Type: Spontaneous
  Country: US (occurrence: US)
  Receive Date: 20150831
  Receipt Date: 20150831
  Transmission Date: 20151125
  Serious: No
  Sender: FDA-Public Use
  Company Number: US-ELI_LILLY_AND_COMPANY-US200809001288

PATIENT
  Sex: Female

DRUGS (1)
  1. CYMBALTA [Suspect]
     Active Substance: DULOXETINE HYDROCHLORIDE
     Indication: DEPRESSION
     Dosage: 60 MG, DAILY (1/D)
     Dates: start: 2008, end: 20080830

REACTIONS (15)
  - Influenza like illness [Unknown]
  - Tinnitus [Unknown]
  - Nightmare [Unknown]
  - Somnambulism [Unknown]
  - Malaise [Unknown]
  - Drug withdrawal syndrome [Unknown]
  - Weight increased [Unknown]
  - Stress [Unknown]
  - Headache [Unknown]
  - Feeling abnormal [Unknown]
  - Dizziness [Unknown]
  - Insomnia [Unknown]
  - Disorientation [Unknown]
  - Abnormal dreams [Unknown]
  - Terminal insomnia [Unknown]

NARRATIVE: CASE EVENT DATE: 2008
